FAERS Safety Report 16158900 (Version 2)
Quarter: 2019Q2

REPORT INFORMATION
  Report Type: Spontaneous
  Country: US (occurrence: US)
  Receive Date: 20190404
  Receipt Date: 20190426
  Transmission Date: 20190711
  Serious: Yes (Other)
  Sender: FDA-Public Use
  Company Number: US-GLAXOSMITHKLINE-US2019GSK060423

PATIENT
  Sex: Female
  Weight: 108.39 kg

DRUGS (1)
  1. BENLYSTA [Suspect]
     Active Substance: BELIMUMAB
     Indication: PRODUCT USED FOR UNKNOWN INDICATION
     Dosage: 1072 MG, UNK
     Route: 042
     Dates: start: 20171205, end: 20180430

REACTIONS (1)
  - Hodgkin^s disease [Unknown]
